FAERS Safety Report 12154923 (Version 2)
Quarter: 2016Q1

REPORT INFORMATION
  Report Type: Report from Study
  Country: US (occurrence: US)
  Receive Date: 20160307
  Receipt Date: 20160329
  Transmission Date: 20160526
  Serious: Yes (Hospitalization)
  Sender: FDA-Public Use
  Company Number: US-MALLINCKRODT-T201505385

PATIENT
  Age: 69 Year
  Sex: Female

DRUGS (7)
  1. PREDNISONE. [Suspect]
     Active Substance: PREDNISONE
     Indication: PRODUCT USED FOR UNKNOWN INDICATION
     Dosage: UNK DOSE (HIGH DOSE)/FREQUENCY
     Route: 065
     Dates: end: 201511
  2. PREDNISONE. [Suspect]
     Active Substance: PREDNISONE
     Dosage: 30 MG, QD
     Route: 065
     Dates: start: 201511, end: 201601
  3. PREDNISONE. [Suspect]
     Active Substance: PREDNISONE
     Dosage: ON A WEAN
     Route: 065
     Dates: start: 201602
  4. OXYGEN. [Concomitant]
     Active Substance: OXYGEN
     Dosage: VARYING FLOW RATES/24 HOURS/DAILY
  5. PREDNISONE. [Suspect]
     Active Substance: PREDNISONE
     Dosage: TITRATE UP TO CONTROL SYMPTOMS
     Route: 065
     Dates: start: 201601, end: 201602
  6. REPOSITORY CORTICOTROPIN INJECTION [Suspect]
     Active Substance: CORTICOTROPIN
     Indication: PULMONARY SARCOIDOSIS
     Dosage: 80 UNITS 3 TIMES WKLY
     Route: 058
     Dates: start: 20151102, end: 20151125
  7. REPOSITORY CORTICOTROPIN INJECTION [Suspect]
     Active Substance: CORTICOTROPIN
     Dosage: 40 UNITS 3 TIMES WKLY (M/W/F)
     Route: 058
     Dates: start: 20160203, end: 20160309

REACTIONS (10)
  - Blood glucose fluctuation [Not Recovered/Not Resolved]
  - Abdominal pain upper [Not Recovered/Not Resolved]
  - Memory impairment [Recovered/Resolved]
  - Immunodeficiency [Not Recovered/Not Resolved]
  - Herpes zoster [Recovering/Resolving]
  - Peripheral swelling [Recovered/Resolved]
  - Inflammation [Not Recovered/Not Resolved]
  - Oxygen saturation decreased [Not Recovered/Not Resolved]
  - Sputum abnormal [Recovered/Resolved]
  - Insomnia [Recovered/Resolved]

NARRATIVE: CASE EVENT DATE: 201511
